FAERS Safety Report 16811168 (Version 2)
Quarter: 2019Q4

REPORT INFORMATION
  Report Type: Spontaneous
  Country: JP (occurrence: JP)
  Receive Date: 20190916
  Receipt Date: 20191017
  Transmission Date: 20200122
  Serious: Yes (Hospitalization)
  Sender: FDA-Public Use
  Company Number: JP-JNJFOC-20190913940

PATIENT
  Age: 52 Year
  Sex: Male

DRUGS (6)
  1. STELARA [Concomitant]
     Active Substance: USTEKINUMAB
     Indication: PRODUCT USED FOR UNKNOWN INDICATION
     Dosage: 3 DOSAGE FORM
     Route: 042
     Dates: start: 20191005
  2. PENTASA [Concomitant]
     Active Substance: MESALAMINE
     Indication: CROHN^S DISEASE
     Dosage: 3.18 GRAM, QD
     Route: 048
  3. REMICADE [Suspect]
     Active Substance: INFLIXIMAB
     Dosage: UNK
     Route: 042
     Dates: start: 20190712
  4. REMICADE [Suspect]
     Active Substance: INFLIXIMAB
     Indication: CROHN^S DISEASE
     Route: 042
     Dates: start: 20090930
  5. BIOFERMIN                          /01617201/ [Concomitant]
     Active Substance: DIETARY SUPPLEMENT\PROBIOTICS
     Indication: CROHN^S DISEASE
     Dosage: 1 DOSAGE FORM, QD
     Route: 048
  6. ELENTAL [Concomitant]
     Active Substance: AMINO ACIDS\CARBOHYDRATES\MINERALS\SOYBEAN OIL\VITAMINS
     Indication: CROHN^S DISEASE
     Dosage: 240 GRAM, QD
     Route: 048

REACTIONS (1)
  - Testicular neoplasm [Recovered/Resolved]

NARRATIVE: CASE EVENT DATE: 20190826
